FAERS Safety Report 7374777-X (Version None)
Quarter: 2011Q1

REPORT INFORMATION
  Report Type: 
  Country: None (occurrence: None)
  Receive Date: 20110325
  Receipt Date: 20101105
  Transmission Date: 20110831
  Serious: No
  Sender: FDA-Public Use
  Company Number: US-MYLANLABS-2010S1020242

PATIENT
  Age: 48 Year
  Sex: Female
  Weight: 53.07 kg

DRUGS (4)
  1. FENTANYL-100 [Suspect]
     Indication: PAIN
     Dosage: Q48H
     Route: 062
     Dates: start: 20080101, end: 20101022
  2. FENTANYL-100 [Suspect]
     Dosage: Q48H
     Route: 062
     Dates: start: 20101011, end: 20101022
  3. PERCOCET [Concomitant]
     Indication: BREAKTHROUGH PAIN
     Route: 048
  4. FENTANYL-100 [Suspect]
     Dosage: Q48H
     Route: 062
     Dates: start: 20101022

REACTIONS (3)
  - FEELING ABNORMAL [None]
  - EXTRASYSTOLES [None]
  - COLD SWEAT [None]
